FAERS Safety Report 8789926 (Version 1)
Quarter: 2012Q4

REPORT INFORMATION
  Report Type: 
  Country: US (occurrence: US)
  Receive Date: 20120914
  Receipt Date: 20120914
  Transmission Date: 20130627
  Serious: Yes (Other)
  Sender: FDA-Public Use
  Company Number: US-ELI_LILLY_AND_COMPANY-US201209001741

PATIENT
  Age: 61 Year
  Sex: Male

DRUGS (2)
  1. HUMULIN REGULAR [Suspect]
     Indication: DIABETES MELLITUS
     Dosage: UNK, prn
     Dates: start: 2011
  2. HUMULIN NPH [Suspect]
     Indication: DIABETES MELLITUS
     Dosage: UNK, prn
     Dates: start: 2011

REACTIONS (5)
  - Blood glucose increased [Unknown]
  - Fall [Unknown]
  - Blood glucose decreased [Unknown]
  - Head injury [None]
  - Joint injury [None]
